FAERS Safety Report 15581192 (Version 1)
Quarter: 2018Q4

REPORT INFORMATION
  Report Type: Spontaneous
  Country: US (occurrence: US)
  Receive Date: 20181105
  Receipt Date: 20181105
  Transmission Date: 20190205
  Serious: No
  Sender: FDA-Public Use
  Company Number: US-UNICHEM PHARMACEUTICALS (USA) INC-UCM201803-000070

PATIENT
  Age: 50 Year
  Sex: Female
  Weight: 71.21 kg

DRUGS (4)
  1. LAMOTRIGINE 150 MG TABLETS [Suspect]
     Active Substance: LAMOTRIGINE
     Indication: BIPOLAR DISORDER
     Dates: start: 20171220, end: 20180314
  2. CITALOPRAM [Concomitant]
     Active Substance: CITALOPRAM HYDROBROMIDE
  3. ZANTAC [Concomitant]
     Active Substance: RANITIDINE HYDROCHLORIDE
  4. QUETIAPINE. [Concomitant]
     Active Substance: QUETIAPINE
     Indication: BIPOLAR DISORDER

REACTIONS (6)
  - Pruritus [Recovering/Resolving]
  - Swelling [Recovering/Resolving]
  - Urticaria [Recovering/Resolving]
  - Contusion [Recovering/Resolving]
  - Scratch [Recovering/Resolving]
  - Hot flush [Recovering/Resolving]
